FAERS Safety Report 5915143-0 (Version None)
Quarter: 2008Q3

REPORT INFORMATION
  Report Type: 
  Country: None (occurrence: None)
  Receive Date: 20080909
  Receipt Date: 20080108
  Transmission Date: 20090109
  Serious: Yes (Hospitalization)
  Sender: FDA-Public Use
  Company Number: 163-20785-08010401 (0)

PATIENT
  Age: 73 Year
  Sex: Male

DRUGS (1)
  1. THALOMID [Suspect]
     Indication: MYELODYSPLASTIC SYNDROME
     Dosage: 50 MG, 1 IN 1 D, ORAL
     Route: 048
     Dates: start: 20071130

REACTIONS (5)
  - ASTHENIA [None]
  - CHEST DISCOMFORT [None]
  - DYSPNOEA [None]
  - HYPOAESTHESIA [None]
  - PARAESTHESIA [None]
